FAERS Safety Report 18376591 (Version 6)
Quarter: 2021Q3

REPORT INFORMATION
  Report Type: Report from Study
  Country: CA (occurrence: CA)
  Receive Date: 20201013
  Receipt Date: 20210929
  Transmission Date: 20211014
  Serious: Yes (Death, Hospitalization, Other)
  Sender: FDA-Public Use
  Company Number: CA-JNJFOC-20200807591

PATIENT
  Age: 64 Year
  Sex: Female
  Weight: 70 kg

DRUGS (1)
  1. REMICADE [Suspect]
     Active Substance: INFLIXIMAB
     Indication: CROHN^S DISEASE
     Route: 042
     Dates: start: 20070523

REACTIONS (7)
  - Urinary tract infection [Unknown]
  - Cerebrovascular accident [Fatal]
  - Chronic obstructive pulmonary disease [Unknown]
  - Skin cancer [Unknown]
  - Dyspnoea [Unknown]
  - Embolism [Fatal]
  - Pneumonia [Unknown]

NARRATIVE: CASE EVENT DATE: 202106
